FAERS Safety Report 23603159 (Version 1)
Quarter: 2024Q1

REPORT INFORMATION
  Report Type: Spontaneous
  Country: GB (occurrence: GB)
  Receive Date: 20240307
  Receipt Date: 20240307
  Transmission Date: 20240410
  Serious: Yes (Disabling, Other)
  Sender: FDA-Public Use
  Company Number: GB-MHRA-MED-202402231425456120-DMZWR

PATIENT
  Age: 38 Year
  Sex: Female
  Weight: 83 kg

DRUGS (2)
  1. SIMVASTATIN [Suspect]
     Active Substance: SIMVASTATIN
     Indication: Hyperlipidaemia
     Dosage: 10 MILLIGRAM AT NIGHT
     Route: 065
     Dates: start: 20220611, end: 20231210
  2. ORTHO EVRA [Concomitant]
     Active Substance: ETHINYL ESTRADIOL\NORELGESTROMIN
     Indication: Contraception
     Dosage: UNK
     Route: 065
     Dates: start: 20160410

REACTIONS (1)
  - Dyshidrotic eczema [Recovered/Resolved]

NARRATIVE: CASE EVENT DATE: 20221110
